FAERS Safety Report 8474418-4 (Version None)
Quarter: 2012Q2

REPORT INFORMATION
  Report Type: 
  Country: None (occurrence: None)
  Receive Date: 20120628
  Receipt Date: 20120621
  Transmission Date: 20120825
  Serious: Yes (Death, Hospitalization, Other)
  Sender: FDA-Public Use
  Company Number: PHHY2012AR053464

PATIENT
  Age: 38 Year
  Sex: Male

DRUGS (1)
  1. IMATINIB MESYLATE [Suspect]
     Indication: CHRONIC MYELOID LEUKAEMIA
     Dosage: 400 MG PER DAY

REACTIONS (13)
  - SKIN PLAQUE [None]
  - AMERICAN TRYPANOSOMIASIS [None]
  - LEUKAEMIA RECURRENT [None]
  - ASTHENIA [None]
  - LYMPHOHISTIOCYTOSIS [None]
  - CHRONIC MYELOID LEUKAEMIA TRANSFORMATION [None]
  - CHRONIC MYELOID LEUKAEMIA [None]
  - NEOPLASM MALIGNANT [None]
  - PYREXIA [None]
  - SKIN LESION [None]
  - PAIN [None]
  - MACULE [None]
  - GRAFT VERSUS HOST DISEASE IN LIVER [None]
